FAERS Safety Report 9156819 (Version 2)
Quarter: 2013Q1

REPORT INFORMATION
  Report Type: Report from Study
  Country: US (occurrence: US)
  Receive Date: 20130312
  Receipt Date: 20130314
  Transmission Date: 20140127
  Serious: Yes (Hospitalization)
  Sender: FDA-Public Use
  Company Number: US-SANOFI-AVENTIS-2013SA017501

PATIENT
  Age: 49 Year
  Sex: Male

DRUGS (9)
  1. INSULIN GLARGINE [Suspect]
     Indication: TYPE 2 DIABETES MELLITUS
     Dosage: DOSE:51 UNIT(S)
     Route: 058
     Dates: start: 20121214
  2. JANUVIA [Concomitant]
     Indication: TYPE 2 DIABETES MELLITUS
     Route: 048
     Dates: start: 201111, end: 20130220
  3. METFORMIN [Concomitant]
     Indication: TYPE 2 DIABETES MELLITUS
     Dates: start: 2007, end: 20130220
  4. NIASPAN [Concomitant]
     Dates: start: 201111
  5. LISINOPRIL [Concomitant]
     Dates: start: 2007
  6. HYDROCHLOROTHIAZIDE [Concomitant]
     Indication: HYPERTENSION
     Dates: start: 2007
  7. AMLODIPINE [Concomitant]
     Dates: start: 2007, end: 20130220
  8. TESTOSTERONE [Concomitant]
     Route: 030
     Dates: start: 2011
  9. ASPIRIN [Concomitant]
     Route: 048
     Dates: start: 2010

REACTIONS (1)
  - Cerebrovascular accident [Recovered/Resolved with Sequelae]
